FAERS Safety Report 7302185-6 (Version None)
Quarter: 2011Q1

REPORT INFORMATION
  Report Type: 
  Country: None (occurrence: None)
  Receive Date: 20110218
  Receipt Date: 20110211
  Transmission Date: 20110831
  Serious: Yes (Other)
  Sender: FDA-Public Use
  Company Number: TR-PFIZER INC-2011030846

PATIENT
  Age: 47 Year
  Sex: Female

DRUGS (2)
  1. NEURONTIN [Suspect]
     Dosage: 2700 MG/DAY
  2. CYMBALTA [Concomitant]
     Dosage: 60 MG/DAY

REACTIONS (3)
  - EPILEPSY [None]
  - URINARY INCONTINENCE [None]
  - SLEEP DISORDER [None]
